FAERS Safety Report 7026235-X (Version None)
Quarter: 2010Q4

REPORT INFORMATION
  Report Type: 
  Country: None (occurrence: None)
  Receive Date: 20101004
  Receipt Date: 20100921
  Transmission Date: 20110411
  Serious: Yes (Other)
  Sender: FDA-Public Use
  Company Number: GB-JNJFOC-20100807631

PATIENT
  Age: 75 Year
  Sex: Male
  Weight: 73.5 kg

DRUGS (5)
  1. TRAMADOL HYDROCHLORIDE [Suspect]
     Indication: PRODUCT USED FOR UNKNOWN INDICATION
     Dosage: 1 DOSE TWICE A DAY
     Route: 065
  2. ORAMORPH SR [Suspect]
     Indication: PAIN
     Dosage: ONE DOSE AS REQUIRED
     Route: 048
  3. ENOXAPARIN SODIUM [Concomitant]
     Route: 065
  4. PARACETAMOL [Concomitant]
     Route: 065
  5. METFORMIN HCL [Concomitant]
     Indication: HYPERGLYCAEMIA
     Route: 065

REACTIONS (2)
  - CIRCULATORY COLLAPSE [None]
  - MIOSIS [None]
